FAERS Safety Report 10480393 (Version 2)
Quarter: 2014Q4

REPORT INFORMATION
  Report Type: Spontaneous
  Country: DE (occurrence: DE)
  Receive Date: 20140929
  Receipt Date: 20141103
  Transmission Date: 20150528
  Serious: Yes (Hospitalization)
  Sender: FDA-Public Use
  Company Number: DE-BAYER-2014-139085

PATIENT
  Age: 34 Year
  Sex: Male
  Weight: 76.19 kg

DRUGS (5)
  1. ADEMPAS [Suspect]
     Active Substance: RIOCIGUAT
     Indication: PULMONARY HYPERTENSION
     Dosage: 2 MG, TID
     Dates: start: 20140830
  2. BOSENTAN [Concomitant]
     Active Substance: BOSENTAN\BOSENTAN MONOHYDRATE
     Dosage: 2 DF, BID
  3. ADEMPAS [Suspect]
     Active Substance: RIOCIGUAT
     Indication: PULMONARY HYPERTENSION
     Dosage: UNK
  4. ALLOPURINOL. [Concomitant]
     Active Substance: ALLOPURINOL
     Dosage: UNK
  5. AMIODARON [Suspect]
     Active Substance: AMIODARONE
     Dosage: 1 DF, QD

REACTIONS (4)
  - Adverse drug reaction [None]
  - Hyperthyroidism [None]
  - Cardiac failure [None]
  - Oedema peripheral [None]

NARRATIVE: CASE EVENT DATE: 20140908
